FAERS Safety Report 21629079 (Version 1)
Quarter: 2022Q4

REPORT INFORMATION
  Report Type: Spontaneous
  Country: US (occurrence: None)
  Receive Date: 20221121
  Receipt Date: 20221121
  Transmission Date: 20230112
  Serious: Yes (Hospitalization)
  Sender: FDA-Public Use
  Company Number: None

PATIENT
  Age: 66 Year
  Sex: Female
  Weight: 36.29 kg

DRUGS (8)
  1. SORAFENIB [Suspect]
     Active Substance: SORAFENIB
     Indication: Cholangiocarcinoma
     Dosage: 200MB TWICE DAILY ORAL?
     Route: 048
     Dates: start: 202210, end: 20221118
  2. AMLODIPINE [Concomitant]
     Active Substance: AMLODIPINE BESYLATE
  3. CYCLOBENZAPRINE [Concomitant]
     Active Substance: CYCLOBENZAPRINE
  4. DICLOFENAC [Concomitant]
     Active Substance: DICLOFENAC
  5. GABAPENTIN [Concomitant]
     Active Substance: GABAPENTIN
  6. METHOCARBAMOL [Concomitant]
     Active Substance: METHOCARBAMOL
  7. OXYCODONE [Concomitant]
     Active Substance: OXYCODONE
  8. XTAMPZA [Concomitant]
     Active Substance: OXYCODONE

REACTIONS (3)
  - Diarrhoea [None]
  - Gastroenteritis viral [None]
  - Therapy interrupted [None]
